FAERS Safety Report 4604889-2 (Version None)
Quarter: 2005Q1

REPORT INFORMATION
  Report Type: 
  Country: None (occurrence: None)
  Receive Date: 20050310
  Receipt Date: 20050310
  Transmission Date: 20050727
  Serious: Yes (Other)
  Sender: FDA-Public Use
  Company Number: None

PATIENT
  Age: 66 Year
  Sex: Male
  Weight: 87.1 kg

DRUGS (13)
  1. EZETIMIBE [Suspect]
  2. LISINOPRIL [Concomitant]
  3. METFORMIN HCL [Concomitant]
  4. HUMULIN R [Concomitant]
  5. NOVOLIN R [Concomitant]
  6. OMEPRAZOLE [Concomitant]
  7. HUMULIN N [Concomitant]
  8. ATENOLOL [Concomitant]
  9. EZETIMIBE [Concomitant]
  10. TAMSULOSIN [Concomitant]
  11. PSYLLIUM ORAL [Concomitant]
  12. CAPAICIN [Concomitant]
  13. HUMULIN R [Concomitant]

REACTIONS (1)
  - MYALGIA [None]
